FAERS Safety Report 9472276 (Version 1)
Quarter: 2013Q3

REPORT INFORMATION
  Report Type: Spontaneous
  Country: US (occurrence: US)
  Receive Date: 20130823
  Receipt Date: 20130823
  Transmission Date: 20140515
  Serious: Yes (Other)
  Sender: FDA-Public Use
  Company Number: US-JNJFOC-20130809721

PATIENT
  Age: 80 Year
  Sex: Male

DRUGS (18)
  1. XARELTO [Suspect]
     Indication: CEREBROVASCULAR ACCIDENT PROPHYLAXIS
     Route: 048
     Dates: start: 201307
  2. XARELTO [Suspect]
     Indication: ATRIAL FIBRILLATION
     Route: 048
     Dates: start: 201307
  3. TRAMADOL [Suspect]
     Indication: PAIN
     Dosage: 1-2 TIMES A DAY
     Route: 048
  4. DOCUSATE [Concomitant]
     Indication: ABNORMAL FAECES
     Route: 048
  5. ASPIRIN [Concomitant]
     Indication: ATRIAL FIBRILLATION
     Route: 048
  6. TYLENOL [Concomitant]
     Indication: PAIN
     Dosage: AS NEEDED
     Route: 048
  7. METOPROLOL [Concomitant]
     Route: 048
  8. NO-FLUSH NIACIN [Concomitant]
     Indication: BLOOD CHOLESTEROL
     Route: 048
  9. LISINOPRIL [Concomitant]
     Indication: HYPERTENSION
     Route: 048
  10. BEANO [Concomitant]
     Indication: GASTRIC PH INCREASED
     Route: 065
  11. RANITIDINE [Concomitant]
     Indication: ULCER
     Route: 048
  12. CALCIUM CARBONATE [Concomitant]
     Route: 048
  13. VITAMIN D3 [Concomitant]
     Route: 048
  14. METHOTREXATE [Concomitant]
     Indication: RHEUMATOID ARTHRITIS
     Route: 065
  15. HYDROXYZINE [Concomitant]
     Route: 065
  16. VITAMIN B12 [Concomitant]
     Route: 048
  17. METANX [Concomitant]
     Route: 048
  18. PROLIA [Concomitant]
     Indication: OSTEOPOROSIS
     Route: 058

REACTIONS (2)
  - Spinal fracture [Not Recovered/Not Resolved]
  - Surgery [Unknown]
